FAERS Safety Report 11941902 (Version 6)
Quarter: 2018Q4

REPORT INFORMATION
  Report Type: Spontaneous
  Country: US (occurrence: US)
  Receive Date: 20160124
  Receipt Date: 20181114
  Transmission Date: 20190204
  Serious: Yes (Hospitalization, Other)
  Sender: FDA-Public Use
  Company Number: US-DSJP-DSU-2015-133823

PATIENT

DRUGS (8)
  1. AZOR [Suspect]
     Active Substance: AMLODIPINE BESYLATE\OLMESARTAN MEDOXOMIL
     Dosage: 5/40 MG, UNK
     Dates: start: 20090629
  2. NORVASC [Concomitant]
     Active Substance: AMLODIPINE BESYLATE
     Indication: PRODUCT USED FOR UNKNOWN INDICATION
     Dosage: 5 MG, UNK
     Dates: start: 2011
  3. BENICAR [Suspect]
     Active Substance: OLMESARTAN MEDOXOMIL
     Dosage: 20 MG, QD
     Route: 048
     Dates: start: 20050101
  4. FUROSEMIDE. [Concomitant]
     Active Substance: FUROSEMIDE
     Indication: PRODUCT USED FOR UNKNOWN INDICATION
     Dosage: UNK
     Route: 048
     Dates: start: 2010
  5. HYDROCHLOROTHIAZIDE. [Concomitant]
     Active Substance: HYDROCHLOROTHIAZIDE
     Indication: PRODUCT USED FOR UNKNOWN INDICATION
     Dosage: 25 MG, QD
     Route: 048
     Dates: start: 2009, end: 2010
  6. BENICAR [Suspect]
     Active Substance: OLMESARTAN MEDOXOMIL
     Indication: HYPERTENSION
     Dosage: 40 MG, QD
     Route: 048
  7. AZOR [Suspect]
     Active Substance: AMLODIPINE BESYLATE\OLMESARTAN MEDOXOMIL
     Indication: BLOOD PRESSURE MANAGEMENT
     Dosage: 5/20 MG, UNK
     Dates: end: 200904
  8. TOPROL XL [Concomitant]
     Active Substance: METOPROLOL SUCCINATE
     Indication: PRODUCT USED FOR UNKNOWN INDICATION
     Dosage: 150 MG, XL QD
     Route: 048
     Dates: start: 2007

REACTIONS (19)
  - Gastric ulcer [Not Recovered/Not Resolved]
  - Irritable bowel syndrome [Not Recovered/Not Resolved]
  - Deep vein thrombosis [Unknown]
  - Hiatus hernia [Unknown]
  - Diverticulitis [Not Recovered/Not Resolved]
  - Umbilical hernia [Recovered/Resolved]
  - Soft tissue disorder [Not Recovered/Not Resolved]
  - Diabetes mellitus [Unknown]
  - Sprue-like enteropathy [Recovering/Resolving]
  - Abdominal hernia [Recovered/Resolved]
  - Helicobacter gastritis [Recovered/Resolved]
  - Impaired gastric emptying [Not Recovered/Not Resolved]
  - Acute kidney injury [Unknown]
  - Mucosa vesicle [Unknown]
  - Large intestine polyp [Recovered/Resolved]
  - Incisional hernia [Recovered/Resolved]
  - Haemorrhoids [Not Recovered/Not Resolved]
  - Gastrooesophageal reflux disease [Not Recovered/Not Resolved]
  - Diverticulum intestinal [Not Recovered/Not Resolved]

NARRATIVE: CASE EVENT DATE: 2004
